FAERS Safety Report 9148446 (Version 2)
Quarter: 2016Q4

REPORT INFORMATION
  Report Type: Spontaneous
  Country: ES (occurrence: ES)
  Receive Date: 20130308
  Receipt Date: 20161121
  Transmission Date: 20170207
  Serious: Yes (Life-Threatening, Hospitalization)
  Sender: FDA-Public Use
  Company Number: PHHY2013ES022022

PATIENT
  Age: 57 Year
  Sex: Female

DRUGS (8)
  1. RITUXIMAB [Concomitant]
     Active Substance: RITUXIMAB
     Indication: RHEUMATOID ARTHRITIS
     Dosage: 2 G, UNK
     Route: 048
     Dates: start: 20120719, end: 20120802
  2. PREDNISONE. [Concomitant]
     Active Substance: PREDNISONE
     Indication: RHEUMATOID ARTHRITIS
     Dosage: 10 MG, UNK
     Route: 048
     Dates: start: 201201
  3. MYFORTIC [Suspect]
     Active Substance: MYCOPHENOLATE SODIUM
     Indication: RHEUMATOID ARTHRITIS
     Dosage: 1440 MG, QID
     Route: 048
     Dates: start: 20120718, end: 20120917
  4. PANTOPRAZOLE [Suspect]
     Active Substance: PANTOPRAZOLE SODIUM
     Indication: PROPHYLAXIS
     Dosage: 40 MG, QD
     Route: 048
     Dates: start: 20120718, end: 20120917
  5. COLECALCIFEROL [Suspect]
     Active Substance: CHOLECALCIFEROL
     Indication: PRODUCT USED FOR UNKNOWN INDICATION
     Dosage: 2.5 G, UNK
     Route: 048
     Dates: start: 201207, end: 20120917
  6. MYFORTIC [Suspect]
     Active Substance: MYCOPHENOLATE SODIUM
     Indication: SCLERODERMA
  7. ARTILOG [Suspect]
     Active Substance: CELECOXIB
     Indication: RHEUMATOID ARTHRITIS
     Dosage: 400 MG, BID
     Route: 048
     Dates: start: 20120716, end: 20120917
  8. ARTILOG [Suspect]
     Active Substance: CELECOXIB
     Indication: SCLERODERMA

REACTIONS (1)
  - Agranulocytosis [Recovered/Resolved]

NARRATIVE: CASE EVENT DATE: 20120914
